FAERS Safety Report 5021382-6 (Version None)
Quarter: 2006Q2

REPORT INFORMATION
  Report Type: 
  Country: None (occurrence: None)
  Receive Date: 20060608
  Receipt Date: 20060530
  Transmission Date: 20061013
  Serious: Yes (Death, Hospitalization)
  Sender: FDA-Public Use
  Company Number: US-SANOFI-SYNTHELABO-A03200603433

PATIENT
  Sex: Female
  Weight: 79.36 kg

DRUGS (8)
  1. ECOTRIN [Concomitant]
     Dosage: UNK
     Route: 048
  2. ISOSORBIDE MONONITRATE [Concomitant]
     Route: 048
  3. BUMETANIDE [Concomitant]
     Route: 048
  4. TOPROL-XL [Concomitant]
     Route: 048
     Dates: start: 20050101
  5. PLAVIX [Suspect]
     Indication: MYOCARDIAL INFARCTION
     Route: 048
     Dates: start: 20040101, end: 20060512
  6. PLAVIX [Suspect]
     Indication: CARDIAC FAILURE CONGESTIVE
     Route: 048
     Dates: start: 20040101, end: 20060512
  7. UNSPECIFIED DIABETES MEDICATION [Concomitant]
     Dosage: UNK
     Route: 065
     Dates: end: 20060512
  8. METOLAZONE [Concomitant]
     Route: 048

REACTIONS (9)
  - ASTHENIA [None]
  - BRAIN DAMAGE [None]
  - CARDIAC FAILURE [None]
  - CHEST PAIN [None]
  - CIRCULATORY COLLAPSE [None]
  - DIZZINESS [None]
  - DYSPEPSIA [None]
  - RENAL FAILURE [None]
  - RESPIRATORY ARREST [None]
